FAERS Safety Report 5141553-8 (Version None)
Quarter: 2006Q4

REPORT INFORMATION
  Report Type: 
  Country: None (occurrence: None)
  Receive Date: 20061101
  Receipt Date: 20060420
  Transmission Date: 20070319
  Serious: Yes (Other)
  Sender: FDA-Public Use
  Company Number: US-BRISTOL-MYERS SQUIBB COMPANY-13352828

PATIENT
  Age: 51 Year
  Sex: Male
  Weight: 122 kg

DRUGS (10)
  1. CYTOXAN [Suspect]
  2. METHOTREXATE [Suspect]
  3. ADRIAMYCIN PFS [Suspect]
  4. ASCORBIC ACID [Suspect]
  5. TRISENOX [Suspect]
     Indication: MULTIPLE MYELOMA
  6. DECADRON [Suspect]
  7. COREG [Concomitant]
  8. DIOVAN [Concomitant]
  9. COUMADIN [Concomitant]
  10. PRAVACHOL [Concomitant]

REACTIONS (1)
  - CATARACT [None]
